FAERS Safety Report 9844325 (Version 2)
Quarter: 2014Q1

REPORT INFORMATION
  Report Type: Report from Study
  Country: CA (occurrence: CA)
  Receive Date: 20140127
  Receipt Date: 20140127
  Transmission Date: 20141002
  Serious: Yes (Hospitalization, Other)
  Sender: FDA-Public Use
  Company Number: CA-BRISTOL-MYERS SQUIBB COMPANY-15506801

PATIENT
  Age: 40 Year
  Sex: Female

DRUGS (6)
  1. ORENCIA [Suspect]
     Indication: RHEUMATOID ARTHRITIS
     Dosage: LAST:21JAN,15APR,14SP11,20JA12,4JL12,13S12 INF:36,EXP:O13,SP14,MA14,A15,JL15,1G64569,3A77129,14APR09
     Route: 042
     Dates: start: 200811
  2. DIGOXIN [Concomitant]
  3. MAGLUCATE [Concomitant]
     Dosage: 1DF=500MG,2 TABLETS THREE TIMES DAILY
     Route: 048
  4. RABEPRAZOLE [Concomitant]
  5. METFORMIN [Concomitant]
  6. PREDNISONE [Concomitant]

REACTIONS (12)
  - Osteoarthritis [Unknown]
  - Pain [Recovering/Resolving]
  - Asthenia [Unknown]
  - Pyrexia [Unknown]
  - Localised infection [Unknown]
  - Localised infection [Not Recovered/Not Resolved]
  - Joint injury [Unknown]
  - Arthropathy [Unknown]
  - Fatigue [Unknown]
  - Skin ulcer [Unknown]
  - Impaired healing [Unknown]
  - Cystitis [Unknown]
